FAERS Safety Report 5964356-0 (Version None)
Quarter: 2008Q4

REPORT INFORMATION
  Report Type: 
  Country: None (occurrence: None)
  Receive Date: 20081124
  Receipt Date: 20081114
  Transmission Date: 20090506
  Serious: Yes (Other)
  Sender: FDA-Public Use
  Company Number: DE-PFIZER INC-2008084700

PATIENT
  Sex: Female
  Weight: 78 kg

DRUGS (4)
  1. LYRICA [Suspect]
     Indication: NEURALGIA
     Route: 048
     Dates: start: 20080501
  2. TRIMIPRAMINE MALEATE [Concomitant]
     Dates: start: 20030101
  3. MIANSERIN [Concomitant]
     Dates: start: 20080501
  4. LOVASTATIN [Concomitant]
     Dates: start: 20070201, end: 20080801

REACTIONS (2)
  - DYSPNOEA [None]
  - PANIC ATTACK [None]
